FAERS Safety Report 25131573 (Version 3)
Quarter: 2025Q2

REPORT INFORMATION
  Report Type: Spontaneous
  Country: US (occurrence: US)
  Receive Date: 20250327
  Receipt Date: 20250623
  Transmission Date: 20250717
  Serious: Yes (Other)
  Sender: ELI LILLY AND COMPANY
  Company Number: US-ELI_LILLY_AND_COMPANY-US202503020393

PATIENT
  Age: 63 Year
  Sex: Female
  Weight: 76.6 kg

DRUGS (8)
  1. ZEPBOUND [Suspect]
     Active Substance: TIRZEPATIDE
     Indication: Weight control
     Route: 058
     Dates: start: 202411, end: 20250304
  2. ZEPBOUND [Suspect]
     Active Substance: TIRZEPATIDE
     Indication: Weight control
     Route: 058
     Dates: start: 202411, end: 20250304
  3. ZEPBOUND [Suspect]
     Active Substance: TIRZEPATIDE
     Indication: Weight control
     Route: 058
     Dates: start: 202411, end: 20250304
  4. ZEPBOUND [Suspect]
     Active Substance: TIRZEPATIDE
     Indication: Weight control
     Route: 058
     Dates: start: 202411, end: 20250304
  5. ZEPBOUND [Suspect]
     Active Substance: TIRZEPATIDE
     Indication: Hypercholesterolaemia
  6. ZEPBOUND [Suspect]
     Active Substance: TIRZEPATIDE
     Indication: Hypercholesterolaemia
  7. ZEPBOUND [Suspect]
     Active Substance: TIRZEPATIDE
     Indication: Hypercholesterolaemia
  8. ZEPBOUND [Suspect]
     Active Substance: TIRZEPATIDE
     Indication: Hypercholesterolaemia

REACTIONS (2)
  - Alanine aminotransferase increased [Recovered/Resolved]
  - Aspartate aminotransferase increased [Recovered/Resolved]

NARRATIVE: CASE EVENT DATE: 20250312
